FAERS Safety Report 18572096 (Version 2)
Quarter: 2020Q4

REPORT INFORMATION
  Report Type: Report from Study
  Country: None (occurrence: CA)
  Receive Date: 20201203
  Receipt Date: 20201217
  Transmission Date: 20210114
  Serious: Yes (Other)
  Sender: FDA-Public Use
  Company Number: CA-ABBVIE-20K-028-3668813-00

PATIENT
  Age: 45 Year
  Sex: Female

DRUGS (1)
  1. HUMIRA [Suspect]
     Active Substance: ADALIMUMAB
     Indication: PRODUCT USED FOR UNKNOWN INDICATION
     Route: 058

REACTIONS (8)
  - Arthralgia [Unknown]
  - Back pain [Unknown]
  - Suicidal ideation [Unknown]
  - Mental disorder [Unknown]
  - Illness [Unknown]
  - Sleep disorder [Unknown]
  - Fatigue [Unknown]
  - Pain [Unknown]
